FAERS Safety Report 18398335 (Version 1)
Quarter: 2020Q4

REPORT INFORMATION
  Report Type: Spontaneous
  Country: IT (occurrence: IT)
  Receive Date: 20201019
  Receipt Date: 20201019
  Transmission Date: 20210114
  Serious: Yes (Hospitalization)
  Sender: FDA-Public Use
  Company Number: IT-SUN PHARMACEUTICAL INDUSTRIES LTD-2020R1-264210

PATIENT
  Age: 30 Year
  Sex: Female

DRUGS (9)
  1. COLCHICINE. [Suspect]
     Active Substance: COLCHICINE
     Dosage: 1.5 MILLIGRAM, DAILY
     Route: 048
  2. PARACETAMOL [Suspect]
     Active Substance: ACETAMINOPHEN
     Indication: PERICARDITIS
     Dosage: 1500 MILLIGRAM, DAILY
  3. IMMUNOGLOBULINS [IMMUNOGLOBULINS NOS] [Suspect]
     Active Substance: IMMUNE GLOBULIN NOS
     Indication: PERICARDITIS
     Dosage: 400 MILLIGRAM/KILOGRAM, DAILY
     Route: 042
  4. PREDNISONE. [Concomitant]
     Active Substance: PREDNISONE
     Indication: PERICARDITIS
     Dosage: 12.5 MILLIGRAM, DAILY
     Route: 048
  5. METHYLPREDNISOLONE. [Suspect]
     Active Substance: METHYLPREDNISOLONE
     Dosage: 25 MILLIGRAM, DAILY
     Route: 048
     Dates: start: 20180910
  6. PARACETAMOL [Suspect]
     Active Substance: ACETAMINOPHEN
     Dosage: 1000 MILLIGRAM, TID
     Dates: start: 20180904
  7. COLCHICINE. [Suspect]
     Active Substance: COLCHICINE
     Indication: PERICARDITIS
     Dosage: 1 MILLIGRAM, DAILY
     Route: 048
  8. METHYLPREDNISOLONE. [Suspect]
     Active Substance: METHYLPREDNISOLONE
     Indication: PERICARDITIS
     Dosage: 40 MILLIGRAM, BID
     Route: 042
  9. PARACETAMOL [Suspect]
     Active Substance: ACETAMINOPHEN
     Dosage: 500 MILLIGRAM, TID

REACTIONS (3)
  - Exposure during pregnancy [Unknown]
  - C-reactive protein increased [Recovered/Resolved]
  - Live birth [Unknown]
